FAERS Safety Report 6806897-X (Version None)
Quarter: 2010Q2

REPORT INFORMATION
  Report Type: 
  Country: None (occurrence: None)
  Receive Date: 20100629
  Receipt Date: 20080708
  Transmission Date: 20101027
  Serious: No
  Sender: FDA-Public Use
  Company Number: US-PFIZER INC-2008037735

PATIENT
  Sex: Male

DRUGS (7)
  1. ALPRAZOLAM [Suspect]
     Indication: HEART RATE
     Dates: start: 20080401
  2. ALPRAZOLAM [Suspect]
     Indication: INSOMNIA
  3. AVALIDE [Concomitant]
  4. AMLODIPINE [Concomitant]
  5. LEVOTHYROXINE SODIUM [Concomitant]
  6. METFORMIN HCL [Concomitant]
  7. GLIMEPIRIDE [Concomitant]

REACTIONS (1)
  - DRUG INEFFECTIVE [None]
